FAERS Safety Report 25059430 (Version 1)
Quarter: 2025Q1

REPORT INFORMATION
  Report Type: Report from Study
  Country: US (occurrence: US)
  Receive Date: 20250310
  Receipt Date: 20250310
  Transmission Date: 20250408
  Serious: Yes (Hospitalization)
  Sender: GILEAD
  Company Number: US-GILEAD-2025-0706593

PATIENT
  Age: 42 Year
  Sex: Male

DRUGS (1)
  1. AZTREONAM LYSINE [Suspect]
     Active Substance: AZTREONAM LYSINE
     Indication: Cystic fibrosis
     Dosage: UNK, TID (INHALE 1 ML (1 VIAL) VIA ALTERA NEBULIZER THREE TIMES A DAY FOR 28 DAYS ON, 28 DAYS OFF)
     Route: 055

REACTIONS (2)
  - Influenza [Unknown]
  - Weight decreased [Unknown]

NARRATIVE: CASE EVENT DATE: 20250204
